FAERS Safety Report 17427241 (Version 1)
Quarter: 2020Q1

REPORT INFORMATION
  Report Type: Spontaneous
  Country: CZ (occurrence: CZ)
  Receive Date: 20200217
  Receipt Date: 20200217
  Transmission Date: 20200409
  Serious: Yes (Other)
  Sender: FDA-Public Use
  Company Number: CZ-MYLANLABS-2020M1006939

PATIENT
  Age: 58 Year
  Sex: Male

DRUGS (5)
  1. CALCIUM FOLINATE [Concomitant]
     Active Substance: LEUCOVORIN CALCIUM
     Dosage: UNK
  2. IRINOTECAN [Concomitant]
     Active Substance: IRINOTECAN
     Dosage: UNK
  3. IRINOTECAN [Suspect]
     Active Substance: IRINOTECAN
     Indication: RECTAL CANCER METASTATIC
     Dosage: UNK
     Route: 042
  4. CAPECITABINE. [Concomitant]
     Active Substance: CAPECITABINE
     Dosage: UNK
  5. OXALIPLATIN. [Suspect]
     Active Substance: OXALIPLATIN
     Indication: RECTAL CANCER METASTATIC
     Dosage: UNK
     Route: 042

REACTIONS (8)
  - Neuropathy peripheral [Unknown]
  - Drug intolerance [Unknown]
  - Thrombocytopenia [Recovered/Resolved]
  - Haematotoxicity [Recovered/Resolved]
  - Diarrhoea [Unknown]
  - Weight decreased [Unknown]
  - Disease progression [Unknown]
  - Renal failure [Recovered/Resolved]
